FAERS Safety Report 6870573-8 (Version None)
Quarter: 2010Q3

REPORT INFORMATION
  Report Type: 
  Country: None (occurrence: None)
  Receive Date: 20100723
  Receipt Date: 20100720
  Transmission Date: 20110219
  Serious: Yes (Death, Hospitalization, Other)
  Sender: FDA-Public Use
  Company Number: US-ASTRAZENECA-2006UW07828

PATIENT
  Age: 48 Year
  Sex: Female
  Weight: 165.1 kg

DRUGS (14)
  1. SEROQUEL [Suspect]
     Indication: SLEEP DISORDER
     Dosage: 50 TO 100 MG, 75-300 MG
     Route: 048
     Dates: start: 20040811, end: 20060301
  2. WELLBUTRIN XL [Concomitant]
     Route: 048
     Dates: start: 20040726
  3. PAXIL [Concomitant]
     Dates: start: 20010515
  4. CLONAZEPAM [Concomitant]
  5. TRAZODONE HCL [Concomitant]
     Dates: start: 20060206
  6. PROTONIX [Concomitant]
     Route: 048
     Dates: start: 20051104
  7. PREDNISONE [Concomitant]
     Dosage: 5-40 MG
     Dates: start: 19940402
  8. ALBUTEROL SULATE [Concomitant]
     Dosage: 2 PUFFS Q 6 H PRN,2.5 MG IN 3 CC NORMAL SALINE
     Dates: start: 19980923
  9. FLOVENT [Concomitant]
     Dosage: 220 ONE PUFF TWICE A DAY, 110 2 PUFFS BID
     Route: 048
     Dates: start: 20010720
  10. CYMBALTA [Concomitant]
     Route: 048
     Dates: start: 20041020
  11. GLYBURIDE [Concomitant]
     Indication: DIABETES MELLITUS
     Route: 048
     Dates: start: 20050719
  12. THEOPHYLLINE-SR [Concomitant]
     Route: 048
     Dates: start: 20040220
  13. IPRATROPIUM BROMIDE [Concomitant]
     Dosage: 0.5 MG/2.5 ML,25X2.5 ML
     Dates: start: 19980923
  14. CEPHALEXIN [Concomitant]
     Indication: BRONCHITIS
     Route: 048
     Dates: start: 19970918

REACTIONS (7)
  - BLOOD CHOLESTEROL INCREASED [None]
  - BRONCHITIS CHRONIC [None]
  - CHRONIC OBSTRUCTIVE PULMONARY DISEASE [None]
  - DEATH [None]
  - RESPIRATORY FAILURE [None]
  - TYPE 1 DIABETES MELLITUS [None]
  - TYPE 2 DIABETES MELLITUS [None]
